FAERS Safety Report 6917891-2 (Version None)
Quarter: 2010Q3

REPORT INFORMATION
  Report Type: 
  Country: None (occurrence: None)
  Receive Date: 20100810
  Receipt Date: 20090505
  Transmission Date: 20110219
  Serious: No
  Sender: FDA-Public Use
  Company Number: US-PFIZER INC-2009208524

PATIENT
  Age: 75 Year
  Sex: Male

DRUGS (3)
  1. TOVIAZ [Suspect]
     Dosage: UNK
  2. QUINAPRIL HCL [Suspect]
  3. AVODART [Concomitant]

REACTIONS (2)
  - FALL [None]
  - TREMOR [None]
